FAERS Safety Report 10027105 (Version 2)
Quarter: 2014Q1

REPORT INFORMATION
  Report Type: Spontaneous
  Country: US (occurrence: US)
  Receive Date: 20140321
  Receipt Date: 20140321
  Transmission Date: 20141002
  Serious: No
  Sender: FDA-Public Use
  Company Number: US-MYLANLABS-2013S1007888

PATIENT
  Sex: Female

DRUGS (3)
  1. ESTRADIOL TRANSDERMAL SYSTEM, USP [Suspect]
     Indication: MENOPAUSE
     Dosage: CHANGE QW
     Route: 062
  2. ESTRADIOL TRANSDERMAL SYSTEM, USP [Suspect]
     Indication: HOT FLUSH
     Dosage: CHANGE QW
     Route: 062
  3. ASPIRIN [Concomitant]

REACTIONS (2)
  - Application site urticaria [Recovered/Resolved]
  - Application site irritation [Recovered/Resolved]
